FAERS Safety Report 6076668-3 (Version None)
Quarter: 2009Q1

REPORT INFORMATION
  Report Type: 
  Country: None (occurrence: None)
  Receive Date: 20090213
  Receipt Date: 20090204
  Transmission Date: 20090719
  Serious: Yes (Other)
  Sender: FDA-Public Use
  Company Number: PHHY2009DE04192

PATIENT
  Age: 82 Year
  Sex: Male

DRUGS (4)
  1. TEGRETOL [Suspect]
     Indication: HEAD INJURY
     Dosage: UNK
     Route: 048
     Dates: start: 19730101
  2. TEGRETOL [Suspect]
     Dosage: 200 MG, 1/2 TAB/DAY
     Route: 048
     Dates: start: 20090101
  3. OMEPRAZOLE [Concomitant]
     Indication: ABDOMINAL DISCOMFORT
  4. CORTICOID [Concomitant]

REACTIONS (6)
  - HEART RATE INCREASED [None]
  - MUSCLE SPASTICITY [None]
  - PAIN [None]
  - PARESIS [None]
  - TONGUE PARALYSIS [None]
  - VASCULAR INSUFFICIENCY [None]
